FAERS Safety Report 7852336-X (Version None)
Quarter: 2011Q3

REPORT INFORMATION
  Report Type: 
  Country: None (occurrence: None)
  Receive Date: 20110906
  Receipt Date: 20110719
  Transmission Date: 20111222
  Serious: No
  Sender: FDA-Public Use
  Company Number: 201105080

PATIENT
  Age: 54 Year
  Sex: Female

DRUGS (2)
  1. ESTRADIOL [Concomitant]
  2. XIAFLEX [Suspect]
     Indication: DUPUYTREN'S CONTRACTURE
     Dosage: 031 CC, INTRALESIONAL
     Route: 026
     Dates: start: 20110523, end: 20110523

REACTIONS (4)
  - OEDEMA PERIPHERAL [None]
  - CONTUSION [None]
  - INCORRECT DOSE ADMINISTERED [None]
  - PAIN [None]
